FAERS Safety Report 5112913-6 (Version None)
Quarter: 2006Q3

REPORT INFORMATION
  Report Type: 
  Country: None (occurrence: None)
  Receive Date: 20060921
  Receipt Date: 20060921
  Transmission Date: 20061208
  Serious: No
  Sender: FDA-Public Use
  Company Number: None

PATIENT
  Sex: Male
  Weight: 105.2345 kg

DRUGS (2)
  1. DOCETAXEL [Suspect]
     Dosage: SEE IMAGE
     Route: 042
     Dates: start: 20060810, end: 20060831
  2. BORTEZOMIB [Suspect]
     Dosage: SEE IMAGE
     Route: 042
     Dates: start: 20060803, end: 20060831

REACTIONS (3)
  - DIARRHOEA [None]
  - NAUSEA [None]
  - VOMITING [None]
